FAERS Safety Report 4764474-9 (Version None)
Quarter: 2005Q3

REPORT INFORMATION
  Report Type: 
  Country: None (occurrence: None)
  Receive Date: 20050907
  Receipt Date: 20050829
  Transmission Date: 20060218
  Serious: Yes (Death, Hospitalization)
  Sender: FDA-Public Use
  Company Number: 2005112502

PATIENT
  Age: 47 Year
  Sex: Male
  Weight: 60 kg

DRUGS (11)
  1. ZYVOX [Suspect]
     Indication: WOUND INFECTION
     Dosage: SEE IMAGE
     Dates: start: 20050613, end: 20050728
  2. ZYVOX [Suspect]
     Indication: WOUND INFECTION
     Dosage: SEE IMAGE
     Dates: start: 20050730, end: 20050802
  3. SPIROLACTONE (SPIRONOLACTONE) [Concomitant]
  4. VITAMINS (VITAMINS) [Concomitant]
  5. MIDAZOLAM HCL [Concomitant]
  6. VANCOMYCIN [Concomitant]
  7. LEVOFLOXACIN [Concomitant]
  8. CORDARONE [Concomitant]
  9. NITRAZEPAM [Concomitant]
  10. SINTENYL (FENTANYL CITRATE) [Concomitant]
  11. VITAMIN B COMPLEX CAP [Concomitant]

REACTIONS (10)
  - ALCOHOLISM [None]
  - CARDIAC FAILURE [None]
  - COMA [None]
  - GENERAL PHYSICAL HEALTH DETERIORATION [None]
  - HEPATIC CIRRHOSIS [None]
  - KETOACIDOSIS [None]
  - LACTIC ACIDOSIS [None]
  - SHOCK [None]
  - UPPER GASTROINTESTINAL HAEMORRHAGE [None]
  - VARICES OESOPHAGEAL [None]
